FAERS Safety Report 13394427 (Version 1)
Quarter: 2017Q2

REPORT INFORMATION
  Report Type: Spontaneous
  Country: US (occurrence: US)
  Receive Date: 20170402
  Receipt Date: 20170402
  Transmission Date: 20170830
  Serious: No
  Sender: FDA-Public Use
  Company Number: US-B.I. PHARMACEUTICALS,INC./RIDGEFIELD-2017-BI-018587

PATIENT
  Sex: Female

DRUGS (2)
  1. COMBIVENT [Suspect]
     Active Substance: ALBUTEROL SULFATE\IPRATROPIUM BROMIDE
     Indication: CHRONIC OBSTRUCTIVE PULMONARY DISEASE
     Dosage: 1 INHALATION 4  TIMES DAY; SOMETIMES UP TO 7 TIMES A DAY;  FORM STRENGTH: 20 MCG / 100 MCG; FORMULAT
     Route: 055
  2. COMBIVENT [Suspect]
     Active Substance: ALBUTEROL SULFATE\IPRATROPIUM BROMIDE
     Dosage: 1 INHALATION 4  TIMES DAY; SOMETIMES UP TO 7 TIMES A DAY;  FORM STRENGTH: 20 MCG / 100 MCG; FORMULAT
     Route: 055

REACTIONS (1)
  - Overdose [Not Recovered/Not Resolved]
